FAERS Safety Report 24096683 (Version 1)
Quarter: 2024Q3

REPORT INFORMATION
  Report Type: Spontaneous
  Country: US (occurrence: None)
  Receive Date: 20240715
  Receipt Date: 20240715
  Transmission Date: 20241017
  Serious: Yes (Other)
  Sender: Public
  Company Number: None

PATIENT
  Age: 72 Year
  Sex: Male
  Weight: 95.4 kg

DRUGS (5)
  1. PLENVU [Suspect]
     Active Substance: ASCORBIC ACID\POLYETHYLENE GLYCOL 3350\POTASSIUM CHLORIDE\SODIUM ASCORBATE\SODIUM CHLORIDE\SODIUM SU
     Indication: Colonoscopy
     Dosage: OTHER QUANTITY : 2 DOSES;?OTHER FREQUENCY : 2 DOSES 2 DAYS;?
     Route: 048
     Dates: start: 20240714, end: 20240715
  2. TAMSULOSIN [Concomitant]
     Active Substance: TAMSULOSIN
  3. ELIQUIS [Concomitant]
     Active Substance: APIXABAN
  4. DOFETILIDE [Concomitant]
     Active Substance: DOFETILIDE
  5. ATORVASTATIN [Concomitant]
     Active Substance: ATORVASTATIN

REACTIONS (2)
  - Product quality issue [None]
  - Product preparation issue [None]

NARRATIVE: CASE EVENT DATE: 20240715
